FAERS Safety Report 15613987 (Version 3)
Quarter: 2018Q4

REPORT INFORMATION
  Report Type: Report from Study
  Country: ES (occurrence: ES)
  Receive Date: 20181113
  Receipt Date: 20181207
  Transmission Date: 20190205
  Serious: Yes (Life-Threatening, Hospitalization, Other)
  Sender: FDA-Public Use
  Company Number: ES-INCYTE CORPORATION-2018IN002510

PATIENT

DRUGS (56)
  1. JAKAVI [Suspect]
     Active Substance: RUXOLITINIB
     Indication: POLYCYTHAEMIA VERA
     Dosage: 20 OT, UNK
     Route: 048
     Dates: start: 20180215, end: 20180226
  2. JAKAVI [Suspect]
     Active Substance: RUXOLITINIB
     Dosage: 20 MG, Q12H
     Route: 048
     Dates: start: 20180307, end: 20180313
  3. ACETYLSALICYLIC ACID [Concomitant]
     Active Substance: ASPIRIN
     Indication: THROMBOSIS PROPHYLAXIS
     Dosage: 100 OT, UNK
     Route: 065
     Dates: start: 20180301, end: 20180301
  4. ALLOPURINOL. [Concomitant]
     Active Substance: ALLOPURINOL
     Indication: RENAL FAILURE
     Dosage: 100 OT, UNK
     Route: 065
     Dates: start: 20180423, end: 20180426
  5. FOSFOMYCIN [Concomitant]
     Active Substance: FOSFOMYCIN
     Indication: URINARY TRACT INFECTION
     Dosage: 3 OT, UNK
     Route: 065
     Dates: start: 20180401, end: 20180401
  6. LORAZEPAM. [Concomitant]
     Active Substance: LORAZEPAM
     Indication: DEPRESSION
     Dosage: 1 OT, UNK
     Route: 065
     Dates: start: 20170710
  7. PREGABALINE [Concomitant]
     Active Substance: PREGABALIN
     Indication: NEURALGIA
     Dosage: 25 OT, UNK
     Route: 065
     Dates: start: 20180329, end: 20180427
  8. JAKAVI [Suspect]
     Active Substance: RUXOLITINIB
     Dosage: 20 UNK, UNK
     Route: 065
     Dates: start: 20180309, end: 20180401
  9. BUSULFAN. [Concomitant]
     Active Substance: BUSULFAN
     Indication: THROMBOCYTOPENIA
     Dosage: 200 OT, UNK
     Route: 065
     Dates: start: 20180525, end: 20180525
  10. FENTANYL. [Concomitant]
     Active Substance: FENTANYL
     Indication: PAIN PROPHYLAXIS
     Dosage: 100 OT, UNK
     Route: 065
     Dates: start: 20170711
  11. IPRATROPIUM BROMIDE AND SALBUTAMOL SULFATE [Concomitant]
     Active Substance: ALBUTEROL SULFATE\IPRATROPIUM BROMIDE
     Indication: FLUID OVERLOAD
     Dosage: 2.5 OT, UNK
     Route: 065
     Dates: start: 20180221, end: 20180308
  12. ISPAGHULA [Concomitant]
     Active Substance: PLANTAGO OVATA SEED
     Indication: CONSTIPATION
     Dosage: 3.5 OT, UNK
     Route: 065
     Dates: start: 20180306, end: 20180308
  13. JAKAVI [Suspect]
     Active Substance: RUXOLITINIB
     Dosage: 40 MG, QD
     Route: 048
     Dates: start: 20180307, end: 20180308
  14. AMOXICILLIN CLAVULANIC ACID [Concomitant]
     Active Substance: AMOXICILLIN\CLAVULANIC ACID
     Indication: URINARY TRACT INFECTION
     Dosage: 875 OT, UNK
     Route: 065
     Dates: start: 20180325, end: 20180328
  15. CASPOFUNGINE [Concomitant]
     Active Substance: CASPOFUNGIN
     Indication: URINARY TRACT INFECTION
     Dosage: 70 OT, UNK
     Route: 065
     Dates: start: 20180402, end: 20180402
  16. MIRTAZAPINE. [Concomitant]
     Active Substance: MIRTAZAPINE
     Indication: DEPRESSION
     Dosage: 15 OT, UNK
     Route: 065
     Dates: start: 20180324, end: 20180426
  17. PARACETAMOL [Concomitant]
     Active Substance: ACETAMINOPHEN
     Indication: PROPHYLAXIS
     Dosage: 1 OT, UNK
     Route: 065
     Dates: start: 20180220, end: 20180308
  18. VENLAFAXINE [Concomitant]
     Active Substance: VENLAFAXINE HYDROCHLORIDE
     Indication: DEPRESSION
     Dosage: 75 OT, UNK
     Route: 065
     Dates: start: 20170811
  19. JAKAVI [Suspect]
     Active Substance: RUXOLITINIB
     Dosage: 30 OT, BID
     Route: 048
     Dates: start: 20180402, end: 20180501
  20. ADIRO [Concomitant]
     Active Substance: ASPIRIN
     Indication: SPLENIC INFARCTION
     Dosage: 100 MG, UNK
     Route: 065
     Dates: start: 20180304
  21. ASPIRIN                            /00002701/ [Concomitant]
     Active Substance: ASPIRIN
     Indication: PRODUCT USED FOR UNKNOWN INDICATION
     Dosage: UNK
     Route: 065
  22. BUTYLSCOPOLAMINE [Concomitant]
     Active Substance: BUTYLSCOPOLAMINE
     Indication: ANXIETY
     Dosage: 20 OT, UNK
     Route: 065
     Dates: start: 20180327, end: 20180330
  23. DOXAZOSINE                         /00639301/ [Concomitant]
     Active Substance: DOXAZOSIN\DOXAZOSIN MESYLATE
     Indication: HYPERTENSION
     Dosage: 4 OT, UNK
     Route: 065
     Dates: start: 20180323, end: 20180427
  24. FOSFOMYCIN [Concomitant]
     Active Substance: FOSFOMYCIN
     Dosage: 3 OT, UNK
     Route: 065
     Dates: start: 20180410, end: 20180410
  25. IPRATROPIUM BROMIDE AND SALBUTAMOL SULFATE [Concomitant]
     Active Substance: ALBUTEROL SULFATE\IPRATROPIUM BROMIDE
     Indication: MUCOSAL INFLAMMATION
     Dosage: 250 OT, UNK
     Route: 065
     Dates: start: 20180409, end: 20180419
  26. PETHIDINE [Concomitant]
     Active Substance: MEPERIDINE
     Indication: PAIN
     Dosage: 50 OT, UNK
     Route: 065
     Dates: start: 20180305, end: 201803
  27. ADOLONTA [Concomitant]
     Active Substance: TRAMADOL HYDROCHLORIDE
     Indication: PAIN PROPHYLAXIS
     Dosage: 100 OT, UNK
     Route: 065
     Dates: start: 20141110
  28. ACETIL CISTEINA [Concomitant]
     Indication: MUCOSAL INFLAMMATION
     Dosage: 300 OT, UNK
     Route: 065
     Dates: start: 20180223, end: 20180308
  29. JAKAVI [Suspect]
     Active Substance: RUXOLITINIB
     Dosage: 30 OT, UNK
     Route: 048
     Dates: start: 20180227, end: 20180306
  30. CASPOFUNGINE [Concomitant]
     Active Substance: CASPOFUNGIN
     Dosage: 50 OT, UNK
     Route: 065
     Dates: start: 20180403, end: 20180418
  31. ENOXAPARIN [Concomitant]
     Active Substance: ENOXAPARIN
     Indication: THROMBOSIS PROPHYLAXIS
     Dosage: 40 OT, UNK
     Route: 065
     Dates: start: 20180225, end: 20180314
  32. LACTULOSE. [Concomitant]
     Active Substance: LACTULOSE
     Dosage: 10 OT, UNK
     Route: 065
     Dates: start: 20180304, end: 20180304
  33. MORFINE [Concomitant]
     Active Substance: MORPHINE
     Indication: PAIN
     Dosage: 5 OT, UNK
     Route: 065
     Dates: start: 20180303, end: 20180303
  34. NICOTINE. [Concomitant]
     Active Substance: NICOTINE
     Indication: DRUG WITHDRAWAL SYNDROME
     Dosage: 21 OT, UNK
     Route: 065
     Dates: start: 20180324, end: 20180426
  35. SIMVASTATINE [Concomitant]
     Active Substance: SIMVASTATIN
     Indication: BLOOD CHOLESTEROL
     Dosage: 10 OT, UNK
     Route: 065
     Dates: start: 20170710
  36. JAKAVI [Suspect]
     Active Substance: RUXOLITINIB
     Dosage: 30 OT, UNK
     Route: 048
     Dates: start: 20180326, end: 20180404
  37. JAKAVI [Suspect]
     Active Substance: RUXOLITINIB
     Dosage: 40 OT, UNK
     Route: 048
     Dates: start: 20180503
  38. BISOPROLOL [Concomitant]
     Active Substance: BISOPROLOL
     Indication: HYPERTENSION
     Dosage: 2.5 OT, UNK
     Route: 065
     Dates: start: 20170711
  39. FOSFOMYCIN [Concomitant]
     Active Substance: FOSFOMYCIN
     Dosage: 3 OT, UNK
     Route: 065
     Dates: start: 20180403, end: 20180426
  40. LACTULOSE. [Concomitant]
     Active Substance: LACTULOSE
     Dosage: 10 OT, UNK
     Route: 065
     Dates: start: 20180329, end: 20180402
  41. METOCLOPRAMIDE. [Concomitant]
     Active Substance: METOCLOPRAMIDE
     Indication: PROPHYLAXIS OF NAUSEA AND VOMITING
     Dosage: 10 OT, UNK
     Route: 065
     Dates: start: 20180303, end: 20180303
  42. PANTOPRAZOL [Concomitant]
     Active Substance: PANTOPRAZOLE SODIUM
     Indication: PROPHYLAXIS
     Dosage: 40 OT, UNK
     Route: 065
     Dates: start: 20170711
  43. PHYTOMENADIONE [Concomitant]
     Active Substance: PHYTONADIONE
     Indication: HAEMORRHAGE PROPHYLAXIS
     Dosage: 10 OT, UNK
     Route: 065
     Dates: start: 20180403, end: 20180426
  44. JAKAVI [Suspect]
     Active Substance: RUXOLITINIB
     Dosage: 40 OT, UNK
     Route: 048
     Dates: start: 20180502
  45. ACETILCISTEINA [Concomitant]
     Active Substance: ACETYLCYSTEINE
     Indication: MUCOSAL INFLAMMATION
     Dosage: 300 OT, UNK
     Route: 065
     Dates: start: 20180223, end: 20180308
  46. AMLODIPINE [Concomitant]
     Active Substance: AMLODIPINE BESYLATE
     Indication: HYPERTENSION
     Dosage: 10 OT, UNK
     Route: 065
     Dates: start: 20180323, end: 20180427
  47. FUROSEMIDE. [Concomitant]
     Active Substance: FUROSEMIDE
     Indication: FLUID OVERLOAD
     Dosage: 20 OT, UNK
     Route: 065
     Dates: start: 20180224, end: 20180426
  48. TRAMADOL. [Concomitant]
     Active Substance: TRAMADOL
     Indication: PAIN
     Dosage: 50 OT, UNK
     Route: 065
     Dates: start: 20180221, end: 20180307
  49. CLEXANE [Concomitant]
     Active Substance: ENOXAPARIN SODIUM
     Indication: SPLENIC INFARCTION
     Dosage: 40/12 HSC
     Route: 065
     Dates: start: 20180305, end: 20180307
  50. DIAZEPAM. [Concomitant]
     Active Substance: DIAZEPAM
     Indication: DEPRESSION
     Dosage: 10 OT, UNK
     Route: 065
     Dates: start: 20080719
  51. ENALAPRIL [Concomitant]
     Active Substance: ENALAPRIL
     Indication: HYPERTENSION
     Dosage: 5 OT, UNK
     Route: 065
     Dates: start: 20180225, end: 20180307
  52. HALOPERIDOL. [Concomitant]
     Active Substance: HALOPERIDOL
     Indication: ANXIETY
     Dosage: 5 OT, UNK
     Route: 065
     Dates: start: 20180325, end: 20180326
  53. LEVOFLOXACINE                      /01278901/ [Concomitant]
     Active Substance: LEVOFLOXACIN
     Indication: PNEUMONIA
     Dosage: 500 OT, UNK
     Route: 065
     Dates: start: 20180324, end: 20180426
  54. LACTULOSE. [Concomitant]
     Active Substance: LACTULOSE
     Indication: CONSTIPATION
     Dosage: 10 OT, UNK
     Route: 065
     Dates: start: 20180301, end: 20180301
  55. MIDAZOLAM [Concomitant]
     Active Substance: MIDAZOLAM HYDROCHLORIDE
     Indication: SEDATIVE THERAPY
     Dosage: 1 OT, UNK
     Route: 065
     Dates: start: 20180308, end: 20180308
  56. TRAMADOL. [Concomitant]
     Active Substance: TRAMADOL
     Indication: PAIN
     Dosage: 50 OT, UNK
     Route: 065
     Dates: start: 20180323, end: 20180329

REACTIONS (5)
  - Pyrexia [Unknown]
  - Urinary tract infection [Unknown]
  - Muscle haemorrhage [Recovering/Resolving]
  - Bladder neoplasm [Recovered/Resolved]
  - Abdominal pain [Recovering/Resolving]

NARRATIVE: CASE EVENT DATE: 20180307
